FAERS Safety Report 15546234 (Version 1)
Quarter: 2018Q4

REPORT INFORMATION
  Report Type: Report from Study
  Country: None (occurrence: US)
  Receive Date: 20181024
  Receipt Date: 20181024
  Transmission Date: 20190205
  Serious: Yes (Other)
  Sender: FDA-Public Use
  Company Number: US-ABBVIE-17K-163-2204831-00

PATIENT
  Sex: Male

DRUGS (1)
  1. HUMIRA [Suspect]
     Active Substance: ADALIMUMAB
     Indication: PSORIATIC ARTHROPATHY
     Route: 058

REACTIONS (6)
  - Body temperature abnormal [Unknown]
  - Injection site pain [Unknown]
  - Suture related complication [Recovered/Resolved]
  - Intervertebral disc protrusion [Recovered/Resolved]
  - Psoriasis [Recovered/Resolved]
  - Nodule [Recovered/Resolved]
